FAERS Safety Report 17059842 (Version 1)
Quarter: 2019Q4

REPORT INFORMATION
  Report Type: Spontaneous
  Country: US (occurrence: US)
  Receive Date: 20191121
  Receipt Date: 20191121
  Transmission Date: 20200122
  Serious: No
  Sender: FDA-Public Use
  Company Number: US-NOVOPROD-649909

PATIENT
  Age: 72 Year
  Sex: Male

DRUGS (1)
  1. NOVOLOG [Suspect]
     Active Substance: INSULIN ASPART
     Indication: TYPE 2 DIABETES MELLITUS
     Dosage: 100 IU, QD
     Route: 058
     Dates: start: 2003

REACTIONS (1)
  - Infusion site infection [Not Recovered/Not Resolved]

NARRATIVE: CASE EVENT DATE: 20190219
